FAERS Safety Report 15229122 (Version 1)
Quarter: 2018Q3

REPORT INFORMATION
  Report Type: Spontaneous
  Country: CA (occurrence: CA)
  Receive Date: 20180801
  Receipt Date: 20180801
  Transmission Date: 20181010
  Serious: Yes (Hospitalization, Other)
  Sender: FDA-Public Use
  Company Number: CA-JAZZ-2018-CA-011428

PATIENT
  Sex: Male

DRUGS (12)
  1. METHOTREXATE. [Suspect]
     Active Substance: METHOTREXATE
     Indication: ACUTE LYMPHOCYTIC LEUKAEMIA
     Dosage: REINDUCTION PROTOCOL (FIRST CYCLE)
     Route: 037
     Dates: end: 201804
  2. CYCLOPHOSPHAMIDE. [Suspect]
     Active Substance: CYCLOPHOSPHAMIDE
     Indication: ACUTE LYMPHOCYTIC LEUKAEMIA
     Dosage: REINDUCTION PROTOCOL (SECOND CYCLE)
  3. METHOTREXATE. [Suspect]
     Active Substance: METHOTREXATE
     Dosage: REINDUCTION PROTOCOL (SECOND CYCLE)
  4. VINCRISTINE [Suspect]
     Active Substance: VINCRISTINE
     Indication: ACUTE LYMPHOCYTIC LEUKAEMIA
     Dosage: REINDUCTION PROTOCOL (FIRST CYCLE)
     Dates: end: 201804
  5. DEXAMETHASONE. [Suspect]
     Active Substance: DEXAMETHASONE
     Dosage: REINDUCTION PROTOCOL (SECOND CYCLE)
  6. ETOPOSIDE. [Suspect]
     Active Substance: ETOPOSIDE
     Indication: ACUTE LYMPHOCYTIC LEUKAEMIA
     Dosage: REINDUCTION PROTOCOL (SECOND CYCLE)
  7. ASPARAGINASE [Suspect]
     Active Substance: ASPARAGINASE
     Indication: ACUTE LYMPHOCYTIC LEUKAEMIA
     Dosage: REINDUCTION PROTOCOL (FIRST CYCLE)
     Dates: end: 201804
  8. MITOXANTRONE [Suspect]
     Active Substance: MITOXANTRONE HYDROCHLORIDE
     Indication: ACUTE LYMPHOCYTIC LEUKAEMIA
     Dosage: REINDUCTION PROTOCOL (FIRST CYCLE)
     Dates: end: 201804
  9. VINCRISTINE [Suspect]
     Active Substance: VINCRISTINE
     Dosage: REINDUCTION PROTOCOL (SECOND CYCLE)
  10. ASPARAGINASE [Suspect]
     Active Substance: ASPARAGINASE
     Dosage: REINDUCTION PROTOCOL (SECOND CYCLE)
  11. DEXAMETHASONE. [Suspect]
     Active Substance: DEXAMETHASONE
     Indication: ACUTE LYMPHOCYTIC LEUKAEMIA
     Dosage: REINDUCTION PROTOCOL (FIRST CYCLE)
     Dates: end: 201804
  12. BLINATUMOMAB [Suspect]
     Active Substance: BLINATUMOMAB
     Indication: ACUTE LYMPHOCYTIC LEUKAEMIA
     Dosage: UNKNOWN DOSE
     Dates: start: 201806

REACTIONS (2)
  - Encephalopathy [Unknown]
  - Minimal residual disease [Not Recovered/Not Resolved]

NARRATIVE: CASE EVENT DATE: 2018
